FAERS Safety Report 15428935 (Version 4)
Quarter: 2019Q1

REPORT INFORMATION
  Report Type: Spontaneous
  Country: CA (occurrence: CA)
  Receive Date: 20180926
  Receipt Date: 20190312
  Transmission Date: 20190417
  Serious: Yes (Other)
  Sender: FDA-Public Use
  Company Number: CA-CELLTRION INC.-2018CA021229

PATIENT

DRUGS (9)
  1. INFLECTRA [Suspect]
     Active Substance: INFLIXIMAB-DYYB
     Dosage: 900 MG, EVERY 4 WEEKS FOR 3 DOSES THEN EVERY 6 WEEKS
     Route: 042
     Dates: start: 20181008, end: 20181008
  2. INFLECTRA [Suspect]
     Active Substance: INFLIXIMAB-DYYB
     Dosage: 900 MG, EVERY 4 WEEKS FOR 3 DOSES THEN EVERY 6 WEEKS
     Route: 042
     Dates: start: 20181204, end: 20181204
  3. INFLECTRA [Suspect]
     Active Substance: INFLIXIMAB-DYYB
     Dosage: 500 MG, AT 0, 2, 6 WEEKS, THEN EVERY 8 WEEKS
     Route: 042
     Dates: start: 20180717, end: 20180717
  4. INFLECTRA [Suspect]
     Active Substance: INFLIXIMAB-DYYB
     Indication: ANKYLOSING SPONDYLITIS
     Dosage: 500 MG, AT 0, 2, 6 WEEKS, THEN EVERY 8 WEEKS
     Route: 042
     Dates: start: 20180605, end: 20180605
  5. INFLECTRA [Suspect]
     Active Substance: INFLIXIMAB-DYYB
     Dosage: 500 MG, AT 0, 2, 6 WEEKS, THEN EVERY  8 WEEKS
     Route: 042
     Dates: start: 20180619, end: 20180619
  6. INFLECTRA [Suspect]
     Active Substance: INFLIXIMAB-DYYB
     Dosage: 500 MG, AT 0, 2, 6 WEEKS, THEN EVERY 8 WEEKS
     Route: 042
     Dates: start: 20180910, end: 20180910
  7. INFLECTRA [Suspect]
     Active Substance: INFLIXIMAB-DYYB
     Dosage: 900 MG, EVERY 4 WEEKS FOR 3 DOSES THEN EVERY 6 WEEKS
     Route: 042
     Dates: start: 20181106, end: 20181106
  8. INFLECTRA [Suspect]
     Active Substance: INFLIXIMAB-DYYB
     Dosage: 500 MG, AT 0, 2, 6 WEEKS, THEN EVERY 8 WEEKS
     Route: 042
     Dates: start: 20180717, end: 20180717
  9. INFLECTRA [Suspect]
     Active Substance: INFLIXIMAB-DYYB
     Dosage: 900 MG, EVERY 4 WEEKS FOR 3 DOSES THEN EVERY 6 WEEKS
     Route: 042
     Dates: start: 20181106, end: 20181106

REACTIONS (14)
  - Hypersensitivity [Recovered/Resolved]
  - Pain [Not Recovered/Not Resolved]
  - Migraine [Not Recovered/Not Resolved]
  - Myocardial infarction [Unknown]
  - Speech disorder [Unknown]
  - Fatigue [Unknown]
  - Cardiac arrest [Unknown]
  - Angina pectoris [Recovered/Resolved]
  - Skin lesion [Unknown]
  - Drug ineffective [Not Recovered/Not Resolved]
  - Malaise [Unknown]
  - Headache [Unknown]
  - Peripheral swelling [Unknown]
  - Product use issue [Unknown]

NARRATIVE: CASE EVENT DATE: 2018
